FAERS Safety Report 6213876-2 (Version None)
Quarter: 2009Q2

REPORT INFORMATION
  Report Type: 
  Country: None (occurrence: None)
  Receive Date: 20090602
  Receipt Date: 20090602
  Transmission Date: 20091009
  Serious: Yes (Hospitalization)
  Sender: FDA-Public Use
  Company Number: None

PATIENT
  Age: 73 Year
  Sex: Male
  Weight: 77.27 kg

DRUGS (1)
  1. CARVEDILOL [Suspect]
     Dosage: 3.125 MG BID PO
     Route: 048
     Dates: start: 20071010, end: 20080306

REACTIONS (2)
  - ASTHENIA [None]
  - BRADYCARDIA [None]
